FAERS Safety Report 5160285-3 (Version None)
Quarter: 2006Q4

REPORT INFORMATION
  Report Type: 
  Country: None (occurrence: None)
  Receive Date: 20061129
  Receipt Date: 20061027
  Transmission Date: 20070319
  Serious: Yes (Hospitalization)
  Sender: FDA-Public Use
  Company Number: JP-JPN-A200604608

PATIENT
  Age: 90 Year
  Sex: Female
  Weight: 49 kg

DRUGS (12)
  1. ZANTAC [Suspect]
     Indication: GASTRIC PH INCREASED
     Dosage: 75MG TWICE PER DAY
     Route: 048
     Dates: start: 20060418, end: 20060927
  2. ALEVIATIN [Concomitant]
     Indication: EPILEPSY
     Dosage: 2G PER DAY
     Route: 048
     Dates: start: 20060418
  3. SYMMETREL [Concomitant]
     Indication: DYSPHAGIA
     Dosage: 100MG PER DAY
     Route: 048
     Dates: start: 20060418
  4. MUCOSOLVAN [Concomitant]
     Indication: PRODUCTIVE COUGH
     Dosage: .5G THREE TIMES PER DAY
     Route: 048
     Dates: start: 20060418
  5. NEUER [Concomitant]
     Indication: GASTRIC MUCOSAL LESION
     Dosage: .5G THREE TIMES PER DAY
     Route: 048
     Dates: start: 20060418
  6. PANTOSIN [Concomitant]
     Indication: CONSTIPATION
     Dosage: 1.5G PER DAY
     Route: 048
     Dates: start: 20060418
  7. GASMOTIN [Concomitant]
     Dosage: 1.5G PER DAY
     Route: 048
     Dates: start: 20060418
  8. BIOFERMIN [Concomitant]
     Dosage: 3MG PER DAY
     Route: 048
     Dates: start: 20060418
  9. SYMMETREL [Concomitant]
     Dosage: 100MG PER DAY
     Route: 048
     Dates: start: 20060418
  10. HOKUNALIN [Concomitant]
     Dosage: .5MG PER DAY
     Route: 062
     Dates: start: 20060419
  11. BISOLVON [Concomitant]
     Indication: PRODUCTIVE COUGH
     Dosage: 6ML PER DAY
     Route: 055
     Dates: start: 20060418
  12. UNKNOWN DRUG [Concomitant]
     Dosage: 903ML PER DAY
     Route: 042
     Dates: start: 20060404

REACTIONS (6)
  - MEDIASTINAL DISORDER [None]
  - OXYGEN SATURATION DECREASED [None]
  - PANCYTOPENIA [None]
  - PNEUMONIA [None]
  - PYREXIA [None]
  - VITAMIN B12 DECREASED [None]
